FAERS Safety Report 22398153 (Version 2)
Quarter: 2023Q2

REPORT INFORMATION
  Report Type: Spontaneous
  Country: US (occurrence: US)
  Receive Date: 20230602
  Receipt Date: 20230630
  Transmission Date: 20230721
  Serious: Yes (Hospitalization, Other)
  Sender: FDA-Public Use
  Company Number: US-JNJFOC-20230557498

PATIENT
  Age: 80 Year
  Sex: Male

DRUGS (7)
  1. ERLEADA [Suspect]
     Active Substance: APALUTAMIDE
     Indication: Product used for unknown indication
     Route: 048
     Dates: start: 202211
  2. ORGOVYX [Suspect]
     Active Substance: RELUGOLIX
     Indication: Neoplasm malignant
     Route: 048
     Dates: start: 20221112, end: 20221112
  3. ORGOVYX [Suspect]
     Active Substance: RELUGOLIX
     Route: 048
     Dates: start: 20221113
  4. ORGOVYX [Suspect]
     Active Substance: RELUGOLIX
     Route: 065
  5. ORGOVYX [Suspect]
     Active Substance: RELUGOLIX
     Route: 065
  6. ORGOVYX [Suspect]
     Active Substance: RELUGOLIX
     Route: 065
  7. SODIUM CHLORIDE [Suspect]
     Active Substance: SODIUM CHLORIDE
     Indication: Product used for unknown indication
     Route: 065

REACTIONS (26)
  - Metastases to bone [Unknown]
  - Plasma cell myeloma [Unknown]
  - Syncope [Not Recovered/Not Resolved]
  - Urinary retention [Unknown]
  - Hot flush [Not Recovered/Not Resolved]
  - Anaemia [Not Recovered/Not Resolved]
  - Catheter site pain [Unknown]
  - Hypersensitivity [Unknown]
  - Blood sodium decreased [Not Recovered/Not Resolved]
  - Fluid retention [Unknown]
  - Headache [Unknown]
  - Hypotension [Unknown]
  - Nausea [Not Recovered/Not Resolved]
  - Abdominal distension [Unknown]
  - Fatigue [Recovering/Resolving]
  - Asthenia [Unknown]
  - Blood glucose increased [Unknown]
  - White blood cell count decreased [Not Recovered/Not Resolved]
  - Weight decreased [Not Recovered/Not Resolved]
  - Protein total abnormal [Unknown]
  - Blood lactic acid increased [Unknown]
  - Urinary tract disorder [Unknown]
  - Incorrect dose administered [Unknown]
  - Platelet count decreased [Unknown]
  - Decreased appetite [Unknown]
  - Wound [Unknown]

NARRATIVE: CASE EVENT DATE: 20230118
